FAERS Safety Report 8266753-X (Version None)
Quarter: 2012Q2

REPORT INFORMATION
  Report Type: 
  Country: None (occurrence: None)
  Receive Date: 20120409
  Receipt Date: 20120403
  Transmission Date: 20120825
  Serious: Yes (Hospitalization)
  Sender: FDA-Public Use
  Company Number: US-BIOGENIDEC-2012BI010159

PATIENT
  Age: 36 Year
  Sex: Female

DRUGS (12)
  1. BENTYL [Concomitant]
  2. CYMBALTA [Concomitant]
  3. CYCLOBENZAPRINE [Concomitant]
  4. SERTRALINE HYDROCHLORIDE [Concomitant]
  5. HYDROCHLOROTHIAZIDE [Concomitant]
  6. METOPROLOL TARTRATE [Concomitant]
  7. VENTOLIN [Concomitant]
  8. VICODIN [Concomitant]
  9. TYSABRI [Suspect]
     Indication: MULTIPLE SCLEROSIS
     Route: 042
     Dates: start: 20120104
  10. TRILEPTAL [Concomitant]
  11. GABAPENTIN [Concomitant]
  12. NABUMETONE [Concomitant]

REACTIONS (1)
  - SUICIDAL IDEATION [None]
